FAERS Safety Report 19646564 (Version 1)
Quarter: 2021Q3

REPORT INFORMATION
  Report Type: Spontaneous
  Country: AT (occurrence: AT)
  Receive Date: 20210802
  Receipt Date: 20210802
  Transmission Date: 20211014
  Serious: Yes (Hospitalization)
  Sender: FDA-Public Use
  Company Number: AT-MYLANLABS-2021M1045503

PATIENT
  Sex: Male

DRUGS (11)
  1. TRIGELAN [Concomitant]
     Dosage: UNK, BID (0?1?1)
  2. TRITTICO [Concomitant]
     Active Substance: TRAZODONE HYDROCHLORIDE
     Dosage: UNK, QD (0?0?1)
  3. DETRUSITOL [Concomitant]
     Active Substance: TOLTERODINE TARTRATE
     Dosage: UNK, QD (1?0?0)
  4. CLARITHROMYCIN. [Suspect]
     Active Substance: CLARITHROMYCIN
     Indication: HELICOBACTER GASTRITIS
     Dosage: UNK, QD (0?1?0)
  5. THROMBO ASS [Concomitant]
     Active Substance: ASPIRIN
     Dosage: UNK, QD (0?1?0)
  6. ANAEROBEX [Concomitant]
     Active Substance: METRONIDAZOLE
     Dosage: UNK, QD (0?1?0)
  7. XANOR [Concomitant]
     Active Substance: ALPRAZOLAM
     Indication: RESTLESSNESS
     Dosage: ON DEMAND
  8. PANTOPRAZOLE [Suspect]
     Active Substance: PANTOPRAZOLE
     Indication: HELICOBACTER GASTRITIS
     Dosage: UNK, QD (1?0?0)
  9. TRIGELAN [Concomitant]
     Dosage: UNK, QD (1?0?0)
  10. CITALOPRAM [Suspect]
     Active Substance: CITALOPRAM HYDROBROMIDE
     Indication: BARRETT^S OESOPHAGUS
     Dosage: UNK, QD (1?0?0)
  11. AMOXICILLIN. [Suspect]
     Active Substance: AMOXICILLIN
     Indication: HELICOBACTER GASTRITIS
     Dosage: UNK, QD (0?1?0)

REACTIONS (5)
  - Diarrhoea [Recovering/Resolving]
  - Disorientation [Recovering/Resolving]
  - Nausea [Recovering/Resolving]
  - General physical health deterioration [Recovering/Resolving]
  - Confusional state [Recovering/Resolving]
